FAERS Safety Report 4642741-7 (Version None)
Quarter: 2005Q2

REPORT INFORMATION
  Report Type: 
  Country: None (occurrence: None)
  Receive Date: 20050420
  Receipt Date: 20050415
  Transmission Date: 20051028
  Serious: Yes (Hospitalization)
  Sender: FDA-Public Use
  Company Number: SEWYE436918FEB05

PATIENT
  Age: 53 Year
  Sex: Female

DRUGS (3)
  1. CYCLOSPORINE [Suspect]
     Indication: RENAL TRANSPLANT
     Dosage: 250 MG 2X PER 1 DAY ORAL
     Route: 048
     Dates: start: 20041229
  2. AMOETIN (METRONIDAZOLE) [Concomitant]
  3. CEFOTAXIME SODIUM [Concomitant]

REACTIONS (2)
  - BACK PAIN [None]
  - OSTEOPOROSIS [None]
